FAERS Safety Report 7035428-7 (Version None)
Quarter: 2010Q4

REPORT INFORMATION
  Report Type: 
  Country: None (occurrence: None)
  Receive Date: 20101008
  Receipt Date: 20100927
  Transmission Date: 20110411
  Serious: Yes (Other)
  Sender: FDA-Public Use
  Company Number: CA-PFIZER INC-2010122300

PATIENT

DRUGS (1)
  1. ZELDOX [Suspect]
     Dosage: 60 MG, 2X/DAY

REACTIONS (1)
  - TRANSIENT ISCHAEMIC ATTACK [None]
